FAERS Safety Report 14649957 (Version 1)
Quarter: 2018Q1

REPORT INFORMATION
  Report Type: Spontaneous
  Country: BR (occurrence: BR)
  Receive Date: 20180316
  Receipt Date: 20180316
  Transmission Date: 20180509
  Serious: Yes (Other)
  Sender: FDA-Public Use
  Company Number: BR-ALLERGAN-1814268US

PATIENT
  Age: 61 Year
  Sex: Female
  Weight: 85 kg

DRUGS (1)
  1. RISEDRONATE SODIUM - BP [Suspect]
     Active Substance: RISEDRONATE SODIUM
     Indication: OSTEOPENIA
     Dosage: 150 MG, Q MONTH
     Route: 048
     Dates: start: 20180223, end: 20180223

REACTIONS (10)
  - Muscle spasms [Unknown]
  - Diarrhoea [Unknown]
  - Myalgia [Unknown]
  - Ill-defined disorder [Unknown]
  - Abdominal pain upper [Unknown]
  - Dyspepsia [Unknown]
  - Gastrointestinal disorder [Unknown]
  - Abdominal pain [Unknown]
  - Bedridden [Unknown]
  - Pyrexia [Unknown]

NARRATIVE: CASE EVENT DATE: 20180223
